FAERS Safety Report 6569578-6 (Version None)
Quarter: 2010Q1

REPORT INFORMATION
  Report Type: 
  Country: None (occurrence: None)
  Receive Date: 20100203
  Receipt Date: 20100203
  Transmission Date: 20100710
  Serious: Yes (Life-Threatening, Other)
  Sender: FDA-Public Use
  Company Number: None

PATIENT
  Age: 59 Year
  Sex: Female
  Weight: 79.3795 kg

DRUGS (2)
  1. ZETIA [Suspect]
     Indication: BLOOD CHOLESTEROL INCREASED
     Dosage: 10 MG DAILY
     Dates: start: 20091030
  2. ZETIA [Suspect]
     Indication: BLOOD CHOLESTEROL INCREASED
     Dosage: 10 MG DAILY
     Dates: start: 20091105

REACTIONS (2)
  - HEADACHE [None]
  - HYPOAESTHESIA FACIAL [None]
